FAERS Safety Report 13443508 (Version 1)
Quarter: 2017Q2

REPORT INFORMATION
  Report Type: Spontaneous
  Country: NL (occurrence: NL)
  Receive Date: 20170414
  Receipt Date: 20170414
  Transmission Date: 20170830
  Serious: Yes (Other)
  Sender: FDA-Public Use
  Company Number: NL-TEVA-757707ACC

PATIENT
  Age: 49 Year
  Sex: Female
  Weight: 64 kg

DRUGS (3)
  1. COLECALCIFEROL CAPSULE  400IE [Concomitant]
     Route: 048
  2. MACROGOL 4000 [Concomitant]
     Active Substance: POLYETHYLENE GLYCOL 4000
     Dosage: 2 DOSAGE FORMS DAILY; 2 TIMES DAILY 4 TABLE SPOONS
     Route: 048
  3. HYDROCHLOORTHIAZIDE TABLET 12,5MG [Suspect]
     Active Substance: HYDROCHLOROTHIAZIDE
     Indication: HYPERTENSION
     Dosage: 12.5 MILLIGRAM DAILY; 1 TIME PER DAY 1
     Route: 048
     Dates: start: 20170302

REACTIONS (1)
  - Urinary retention [Recovered/Resolved]

NARRATIVE: CASE EVENT DATE: 20170303
